FAERS Safety Report 11117943 (Version 1)
Quarter: 2015Q2

REPORT INFORMATION
  Report Type: Report from Study
  Country: BR (occurrence: BR)
  Receive Date: 20150518
  Receipt Date: 20150518
  Transmission Date: 20150821
  Serious: Yes (Other)
  Sender: FDA-Public Use
  Company Number: BR-ROCHE-1512362

PATIENT
  Sex: Female
  Weight: 79 kg

DRUGS (6)
  1. MABTHERA [Suspect]
     Active Substance: RITUXIMAB
     Indication: RHEUMATOID ARTHRITIS
     Route: 042
     Dates: start: 20141022, end: 20141105
  2. LOSARTAN [Concomitant]
     Active Substance: LOSARTAN
  3. IMMUNOGLOBULIN [Concomitant]
     Active Substance: HUMAN IMMUNOGLOBULIN G
  4. MABTHERA [Suspect]
     Active Substance: RITUXIMAB
     Indication: SYSTEMIC LUPUS ERYTHEMATOSUS
  5. MABTHERA [Suspect]
     Active Substance: RITUXIMAB
     Indication: MYASTHENIA GRAVIS
  6. CHLORTHALIDONE. [Concomitant]
     Active Substance: CHLORTHALIDONE

REACTIONS (7)
  - Malaise [Not Recovered/Not Resolved]
  - Tremor [Unknown]
  - Pulmonary cavitation [Unknown]
  - Cough [Unknown]
  - Pyrexia [Unknown]
  - Pulmonary tuberculosis [Not Recovered/Not Resolved]
  - Weight decreased [Unknown]
